FAERS Safety Report 14308015 (Version 2)
Quarter: 2017Q4

REPORT INFORMATION
  Report Type: Spontaneous
  Country: FR (occurrence: FR)
  Receive Date: 20171220
  Receipt Date: 20171226
  Transmission Date: 20180321
  Serious: Yes (Other)
  Sender: FDA-Public Use
  Company Number: FR-NEUROCRINE BIOSCIENCES INC.-2017NBI01860

PATIENT
  Sex: Female

DRUGS (2)
  1. INGREZZA [Suspect]
     Active Substance: VALBENAZINE
     Indication: PRODUCT USED FOR UNKNOWN INDICATION
  2. INGREZZA [Suspect]
     Active Substance: VALBENAZINE

REACTIONS (7)
  - Eye swelling [Recovered/Resolved]
  - Urticaria [Recovered/Resolved]
  - Epistaxis [Recovered/Resolved]
  - Occupational exposure to product [Recovered/Resolved]
  - Generalised erythema [Recovered/Resolved]
  - Rash macular [Recovered/Resolved]
  - Fatigue [Unknown]

NARRATIVE: CASE EVENT DATE: 20171009
